FAERS Safety Report 10035774 (Version 1)
Quarter: 2014Q1

REPORT INFORMATION
  Report Type: Spontaneous
  Country: IT (occurrence: None)
  Receive Date: 20140321
  Receipt Date: 20140321
  Transmission Date: 20141002
  Serious: Yes (Hospitalization)
  Sender: FDA-Public Use
  Company Number: AUR-APL-2014-03725

PATIENT
  Age: 46 Year
  Sex: Female

DRUGS (8)
  1. CITALOPRAM [Suspect]
     Indication: PRODUCT USED FOR UNKNOWN INDICATION
     Dosage: 15 ML, TOTAL , ORAL
     Route: 048
     Dates: start: 20130304, end: 20130304
  2. ENALAPRIL [Suspect]
     Indication: PRODUCT USED FOR UNKNOWN INDICATION
     Dosage: 100 MG, TOTAL, ORAL
     Route: 048
     Dates: start: 20130304, end: 20130304
  3. TORA-DOL [Suspect]
     Indication: PRODUCT USED FOR UNKNOWN INDICATION
     Dosage: 30 ML, TOTAL, PO
     Route: 048
     Dates: start: 20130304, end: 20130304
  4. TRITTICO [Suspect]
     Indication: PRODUCT USED FOR UNKNOWN INDICATION
     Dosage: 30 MG, TOTAL, PO
     Route: 048
     Dates: start: 20130304, end: 20130304
  5. DIHYDROCODEINE BITARTRATE [Suspect]
     Dosage: 15 GM, TOTAL, ORAL
     Route: 048
     Dates: start: 20130304, end: 20130304
  6. DEPAKIN [Suspect]
     Indication: PRODUCT USED FOR UNKNOWN INDICATION
     Dosage: 1 GM, TOTAL, ORAL
     Route: 048
     Dates: start: 20130304, end: 20130304
  7. TOLEP [Suspect]
     Indication: PRODUCT USED FOR UNKNOWN INDICATION
     Dosage: 6 DOSAGE FORMS, TOTAL, ORAL
     Route: 048
     Dates: start: 20130304, end: 20130304
  8. CONTRAMAL [Suspect]
     Indication: PRODUCT USED FOR UNKNOWN INDICATION
     Dosage: 30 ML, TOTAL, ORAL
     Route: 048
     Dates: start: 20130304, end: 20130304

REACTIONS (1)
  - Coma [None]
